FAERS Safety Report 8554103-0 (Version None)
Quarter: 2012Q3

REPORT INFORMATION
  Report Type: 
  Country: None (occurrence: None)
  Receive Date: 20120731
  Receipt Date: 20120726
  Transmission Date: 20120928
  Serious: Yes (Death)
  Sender: FDA-Public Use
  Company Number: PHHY2012KR063762

PATIENT
  Sex: Female
  Weight: 49 kg

DRUGS (1)
  1. TELBIVUDINE [Suspect]
     Indication: HEPATITIS B
     Dosage: 600 MG, PER DAY
     Route: 048
     Dates: start: 20101006

REACTIONS (1)
  - PERITONITIS BACTERIAL [None]
